FAERS Safety Report 9760768 (Version 1)
Quarter: 2013Q4

REPORT INFORMATION
  Report Type: Spontaneous
  Country: US (occurrence: US)
  Receive Date: 20131216
  Receipt Date: 20131216
  Transmission Date: 20140711
  Serious: No
  Sender: FDA-Public Use
  Company Number: US-BIOGENIDEC-2013BI102090

PATIENT
  Sex: Male

DRUGS (6)
  1. TECFIDERA [Suspect]
     Indication: MULTIPLE SCLEROSIS
     Route: 048
  2. LIPITOR [Concomitant]
  3. TRICOR [Concomitant]
  4. TEGRETOL [Concomitant]
  5. AMANTADINE [Concomitant]
  6. ASPIRIN [Concomitant]

REACTIONS (1)
  - Accidental overdose [Unknown]
